FAERS Safety Report 18242073 (Version 1)
Quarter: 2020Q3

REPORT INFORMATION
  Report Type: Spontaneous
  Country: US (occurrence: US)
  Receive Date: 20200908
  Receipt Date: 20200908
  Transmission Date: 20201103
  Serious: No
  Sender: FDA-Public Use
  Company Number: US-VERTEX PHARMACEUTICALS-2020-017775

PATIENT
  Age: 11 Year
  Sex: Male

DRUGS (1)
  1. TRIKAFTA [Suspect]
     Active Substance: ELEXACAFTOR\IVACAFTOR\TEZACAFTOR
     Indication: CYSTIC FIBROSIS
     Dosage: FULL DOSE
     Route: 048
     Dates: start: 2020

REACTIONS (2)
  - Pulmonary function test decreased [Unknown]
  - Off label use [Unknown]

NARRATIVE: CASE EVENT DATE: 2020
